FAERS Safety Report 10597790 (Version 3)
Quarter: 2014Q4

REPORT INFORMATION
  Report Type: Report from Study
  Country: GB (occurrence: GB)
  Receive Date: 20141121
  Receipt Date: 20141224
  Transmission Date: 20150529
  Serious: Yes (Death, Life-Threatening, Hospitalization)
  Sender: FDA-Public Use
  Company Number: GB-CELGENE-GBR-2014110342

PATIENT
  Age: 60 Year
  Sex: Male
  Weight: 79.2 kg

DRUGS (18)
  1. ACICLOVIR [Concomitant]
     Active Substance: ACYCLOVIR
     Route: 065
     Dates: start: 20141020
  2. NOZINAN [Concomitant]
     Active Substance: LEVOMEPROMAZINE
     Route: 065
     Dates: start: 20140923
  3. LEVOFLOXACIN. [Concomitant]
     Active Substance: LEVOFLOXACIN
     Route: 065
     Dates: start: 20141020
  4. RED BLOOD CELLS [Concomitant]
     Active Substance: HUMAN RED BLOOD CELL
     Indication: PRODUCT USED FOR UNKNOWN INDICATION
     Route: 041
     Dates: start: 20141017, end: 20141017
  5. PLATELETS [Concomitant]
     Active Substance: HUMAN PLATELET, ALLOGENIC
     Indication: PRODUCT USED FOR UNKNOWN INDICATION
     Route: 041
     Dates: start: 20141016, end: 20141016
  6. PLATELETS [Concomitant]
     Active Substance: HUMAN PLATELET, ALLOGENIC
     Route: 041
     Dates: start: 20140930, end: 20140930
  7. NOZINAN [Concomitant]
     Active Substance: LEVOMEPROMAZINE
     Route: 065
     Dates: start: 20141020
  8. OMPRAZOLE [Concomitant]
     Active Substance: OMEPRAZOLE
     Route: 065
     Dates: start: 20140910
  9. RED BLOOD CELLS [Concomitant]
     Active Substance: HUMAN RED BLOOD CELL
     Route: 065
     Dates: start: 20141020
  10. PLATELETS [Concomitant]
     Active Substance: HUMAN PLATELET, ALLOGENIC
     Route: 041
     Dates: start: 20141021, end: 20141021
  11. AZACITIDINE INJECTABLE [Suspect]
     Active Substance: AZACITIDINE
     Indication: ACUTE MYELOID LEUKAEMIA
     Route: 058
     Dates: start: 20140721, end: 20141021
  12. OMPRAZOLE [Concomitant]
     Active Substance: OMEPRAZOLE
     Route: 065
     Dates: start: 20141020
  13. ROMIDEPSIN [Suspect]
     Active Substance: ROMIDEPSIN
     Indication: ACUTE MYELOID LEUKAEMIA
     Route: 041
     Dates: start: 20140729, end: 20141021
  14. ONDANSETRON [Concomitant]
     Active Substance: ONDANSETRON
     Route: 065
     Dates: start: 20140721
  15. PLATELETS [Concomitant]
     Active Substance: HUMAN PLATELET, ALLOGENIC
     Route: 065
     Dates: start: 20141020
  16. ACICLOVIR [Concomitant]
     Active Substance: ACYCLOVIR
     Indication: INFECTION
     Route: 065
     Dates: start: 20141020
  17. ONDANSETRON [Concomitant]
     Active Substance: ONDANSETRON
     Dosage: 140 MILLIGRAM
     Route: 065
     Dates: start: 20141020
  18. LEVOFLOXACIN. [Concomitant]
     Active Substance: LEVOFLOXACIN
     Indication: ANTIBIOTIC PROPHYLAXIS
     Route: 065
     Dates: start: 20140922

REACTIONS (2)
  - Cardiac arrest [Fatal]
  - Febrile neutropenia [Fatal]

NARRATIVE: CASE EVENT DATE: 20141025
